FAERS Safety Report 13017371 (Version 1)
Quarter: 2016Q4

REPORT INFORMATION
  Report Type: Spontaneous
  Country: JP (occurrence: JP)
  Receive Date: 20161212
  Receipt Date: 20161212
  Transmission Date: 20170207
  Serious: Yes (Hospitalization)
  Sender: FDA-Public Use
  Company Number: JP-JNJFOC-20161209491

PATIENT
  Age: 87 Year
  Sex: Female
  Weight: 41 kg

DRUGS (6)
  1. CANAGLU [Suspect]
     Active Substance: CANAGLIFLOZIN
     Indication: TYPE 2 DIABETES MELLITUS
     Route: 048
     Dates: start: 20160317, end: 20160710
  2. TAKELDA [Concomitant]
     Active Substance: ASPIRIN\LANSOPRAZOLE
     Route: 048
     Dates: start: 20150723
  3. LIPITOR [Concomitant]
     Active Substance: ATORVASTATIN CALCIUM
     Route: 048
     Dates: start: 20150723
  4. MAGMITT [Concomitant]
     Active Substance: MAGNESIUM OXIDE
     Route: 048
     Dates: start: 20150723
  5. THYRADIN [Concomitant]
     Active Substance: LEVOTHYROXINE
     Route: 048
     Dates: start: 20150817
  6. FEBURIC [Concomitant]
     Active Substance: FEBUXOSTAT
     Route: 048
     Dates: start: 20150723

REACTIONS (1)
  - Cachexia [Recovered/Resolved]

NARRATIVE: CASE EVENT DATE: 20160701
